FAERS Safety Report 12549215 (Version 1)
Quarter: 2016Q3

REPORT INFORMATION
  Report Type: Spontaneous
  Country: IT (occurrence: IT)
  Receive Date: 20160712
  Receipt Date: 20160712
  Transmission Date: 20161109
  Serious: Yes (Other)
  Sender: FDA-Public Use
  Company Number: IT-ELI_LILLY_AND_COMPANY-IT201607001258

PATIENT
  Sex: Female

DRUGS (2)
  1. CYMBALTA [Suspect]
     Active Substance: DULOXETINE HYDROCHLORIDE
     Indication: PRODUCT USED FOR UNKNOWN INDICATION
     Dosage: UNK, UNKNOWN
     Route: 065
  2. CYMBALTA [Suspect]
     Active Substance: DULOXETINE HYDROCHLORIDE
     Dosage: 30 MG, UNKNOWN
     Route: 065
     Dates: start: 20160628, end: 20160702

REACTIONS (20)
  - Peripheral swelling [Unknown]
  - Malaise [Unknown]
  - Swelling face [Unknown]
  - Paraesthesia oral [Unknown]
  - Tremor [Unknown]
  - Hyperhidrosis [Unknown]
  - Eructation [Unknown]
  - Mouth swelling [Unknown]
  - Pyrexia [Unknown]
  - Somnolence [Unknown]
  - Breath odour [Unknown]
  - Abdominal pain upper [Unknown]
  - Constipation [Unknown]
  - Nausea [Unknown]
  - Vision blurred [Unknown]
  - Eating disorder [Unknown]
  - Paraesthesia [Unknown]
  - Dizziness [Unknown]
  - Diarrhoea [Unknown]
  - Confusional state [Unknown]
